FAERS Safety Report 25498501 (Version 3)
Quarter: 2025Q4

REPORT INFORMATION
  Report Type: Spontaneous
  Country: JP (occurrence: JP)
  Receive Date: 20250701
  Receipt Date: 20251110
  Transmission Date: 20260117
  Serious: Yes (Other)
  Sender: BAXTER
  Company Number: JP-shionogi-202500006465

PATIENT
  Age: 44 Year
  Sex: Male
  Weight: 65 kg

DRUGS (8)
  1. MESNA [Suspect]
     Active Substance: MESNA
     Indication: Prophylaxis
     Dosage: 9200 MG, QD (INTRAVENOUS DRIP)
     Route: 042
     Dates: start: 20250604, end: 20250605
  2. MESNA [Suspect]
     Active Substance: MESNA
     Dosage: DOSE INCREASED TO 120% (INTRAVENOUS DRIP)
     Route: 042
     Dates: start: 20250624
  3. IFOSFAMIDE [Suspect]
     Active Substance: IFOSFAMIDE
     Indication: Hodgkin^s disease
     Dosage: 9.1 G, QD, ICE THERAPY, CYCLE 1, INTRAVENOUS DRIP
     Route: 042
     Dates: start: 20250604, end: 20250605
  4. IFOSFAMIDE [Suspect]
     Active Substance: IFOSFAMIDE
     Dosage: 9.1 G, QD, ICE THERAPY, CYCLE 2, INTRAVENOUS DRIP
     Route: 042
     Dates: start: 20250624
  5. ETOPOSIDE [Suspect]
     Active Substance: ETOPOSIDE
     Indication: Product used for unknown indication
     Dosage: 185 MG, ICE THERAPY, CYCLE 1 (INTRAVENOUS DRIP)
     Route: 042
     Dates: start: 20250603, end: 20250605
  6. ETOPOSIDE [Suspect]
     Active Substance: ETOPOSIDE
     Dosage: 185 MG, ICE THERAPY, CYCLE 2, INTRAVENOUS DRIP
     Route: 042
     Dates: start: 20250624
  7. CARBOPLATIN [Concomitant]
     Active Substance: CARBOPLATIN
     Indication: Product used for unknown indication
     Dosage: 757 MG, QD, ICE THERAPY, CYCLE 1 (INTRAVENOUS DRIP)
     Route: 042
     Dates: start: 20250604, end: 20250604
  8. CARBOPLATIN [Concomitant]
     Active Substance: CARBOPLATIN
     Dosage: 757 MG, QD, ICE THERAPY, CYCLE 2
     Route: 042
     Dates: start: 20250624

REACTIONS (4)
  - Cystitis haemorrhagic [Recovering/Resolving]
  - Taste disorder [Recovering/Resolving]
  - Haemorrhage [Recovering/Resolving]
  - Nausea [Recovering/Resolving]

NARRATIVE: CASE EVENT DATE: 20250606
